FAERS Safety Report 11298261 (Version 1)
Quarter: 2015Q3

REPORT INFORMATION
  Report Type: Spontaneous
  Country: US (occurrence: US)
  Receive Date: 20150722
  Receipt Date: 20150722
  Transmission Date: 20151125
  Serious: No
  Sender: FDA-Public Use
  Company Number: US-ELI_LILLY_AND_COMPANY-US201106007716

PATIENT
  Sex: Male
  Weight: 81.63 kg

DRUGS (1)
  1. HUMATROPE [Suspect]
     Active Substance: SOMATROPIN
     Indication: GROWTH HORMONE DEFICIENCY
     Dosage: 1.5 U, 6 DAYS/WEEK
     Route: 058
     Dates: start: 2001

REACTIONS (2)
  - Tremor [Unknown]
  - Intention tremor [Recovering/Resolving]
